FAERS Safety Report 5635101-3 (Version None)
Quarter: 2008Q1

REPORT INFORMATION
  Report Type: 
  Country: None (occurrence: None)
  Receive Date: 20080221
  Receipt Date: 20080221
  Transmission Date: 20080703
  Serious: Yes (Other)
  Sender: FDA-Public Use
  Company Number: None

PATIENT
  Age: 50 Year
  Sex: Male

DRUGS (2)
  1. BUPROPRION SR [Suspect]
     Dosage: 150MG BID
  2. BUPROPRION XL [Suspect]
     Dosage: 300MG QD

REACTIONS (2)
  - DRUG INEFFECTIVE [None]
  - HEADACHE [None]
